FAERS Safety Report 9998165 (Version 1)
Quarter: 2014Q1

REPORT INFORMATION
  Report Type: Report from Study
  Country: US (occurrence: US)
  Receive Date: 20140311
  Receipt Date: 20140311
  Transmission Date: 20141002
  Serious: Yes (Hospitalization)
  Sender: FDA-Public Use
  Company Number: US-B.I. PHARMACEUTICALS,INC./RIDGEFIELD-2014-BI-10052BI

PATIENT
  Age: 90 Year
  Sex: Male
  Weight: 77.6 kg

DRUGS (7)
  1. DABIGATRAN [Suspect]
     Indication: ATRIAL FIBRILLATION
     Dosage: 150 MG
     Route: 048
     Dates: end: 20130626
  2. EXELON [Concomitant]
     Dosage: 6 MG
     Route: 048
  3. FLOMAX [Concomitant]
     Dosage: 0.4 MG
     Route: 048
  4. FUROSEMIDE [Concomitant]
     Dosage: 20 MG
     Route: 048
  5. METOPROLOL TARTRATE [Concomitant]
     Dosage: 50 MG
     Route: 048
  6. OMEPRAZOLE [Concomitant]
     Dosage: 40 MG
     Route: 048
  7. ZOCOR [Concomitant]
     Dosage: 20 MG
     Route: 048

REACTIONS (2)
  - Anaemia [Unknown]
  - Occult blood positive [Unknown]
